FAERS Safety Report 9499371 (Version 1)
Quarter: 2013Q3

REPORT INFORMATION
  Report Type: Spontaneous
  Country: US (occurrence: US)
  Receive Date: 20130905
  Receipt Date: 20130905
  Transmission Date: 20140515
  Serious: Yes (Other)
  Sender: FDA-Public Use
  Company Number: US-AMGEN-USASP2013061428

PATIENT
  Age: 68 Year
  Sex: Female

DRUGS (6)
  1. PROLIA [Suspect]
     Indication: OSTEOPOROSIS POSTMENOPAUSAL
     Dosage: 60 MG, UNK
     Route: 065
     Dates: start: 20120323
  2. VITAMINS                           /00067501/ [Concomitant]
  3. CALCIUM [Concomitant]
     Dosage: UNK UNK, BID
  4. FISH OIL [Concomitant]
     Dosage: UNK UNK, TID
  5. CINNAMON                           /01647501/ [Concomitant]
  6. HONEY [Concomitant]

REACTIONS (6)
  - Jaw fracture [Recovered/Resolved]
  - Tooth abscess [Unknown]
  - Dysphagia [Recovered/Resolved]
  - Weight decreased [Not Recovered/Not Resolved]
  - Device issue [Unknown]
  - Swelling face [Unknown]
